FAERS Safety Report 10422419 (Version 1)
Quarter: 2014Q3

REPORT INFORMATION
  Report Type: Spontaneous
  Country: US (occurrence: US)
  Receive Date: 20140901
  Receipt Date: 20140901
  Transmission Date: 20150326
  Serious: No
  Sender: FDA-Public Use
  Company Number: US-009507513-1408USA014876

PATIENT
  Sex: Female

DRUGS (1)
  1. NUVARING [Suspect]
     Active Substance: ETHINYL ESTRADIOL\ETONOGESTREL
     Indication: PRODUCT USED FOR UNKNOWN INDICATION
     Route: 067

REACTIONS (5)
  - Deep vein thrombosis [Unknown]
  - Iron deficiency anaemia [Unknown]
  - Thrombophlebitis superficial [Unknown]
  - Uterine leiomyoma [Unknown]
  - Menorrhagia [Unknown]

NARRATIVE: CASE EVENT DATE: 20120920
